FAERS Safety Report 6243729-5 (Version None)
Quarter: 2009Q2

REPORT INFORMATION
  Report Type: 
  Country: None (occurrence: None)
  Receive Date: 20090618
  Receipt Date: 20090331
  Transmission Date: 20091009
  Serious: Yes (Hospitalization)
  Sender: FDA-Public Use
  Company Number: CIP09000814

PATIENT
  Age: 52 Year
  Sex: Female

DRUGS (1)
  1. ACTONEL [Suspect]
     Dosage: 150 MG ONCE MONTHLY, ORAL
     Route: 048
     Dates: start: 20090327

REACTIONS (8)
  - ARTHRALGIA [None]
  - BLOOD CALCIUM DECREASED [None]
  - BONE PAIN [None]
  - CHILLS [None]
  - HEPATIC ENZYME INCREASED [None]
  - HYPERAESTHESIA [None]
  - NAUSEA [None]
  - VOMITING [None]
